FAERS Safety Report 13778831 (Version 3)
Quarter: 2017Q3

REPORT INFORMATION
  Report Type: Spontaneous
  Country: US (occurrence: US)
  Receive Date: 20170721
  Receipt Date: 20170814
  Transmission Date: 20171127
  Serious: Yes (Other)
  Sender: FDA-Public Use
  Company Number: US-PFIZER INC-2017316418

PATIENT
  Age: 67 Year
  Sex: Female
  Weight: 51.71 kg

DRUGS (1)
  1. ADVIL [Suspect]
     Active Substance: IBUPROFEN
     Indication: ARTHRALGIA
     Dosage: 400 MG, 1X/DAY (TOOK TWO OF THE TABLETS ON SATURDAY MORNING)
     Dates: start: 20170715, end: 20170715

REACTIONS (6)
  - Foreign body in respiratory tract [Recovered/Resolved]
  - Product colour issue [Recovered/Resolved]
  - Poor quality drug administered [Recovered/Resolved]
  - Product coating issue [Recovered/Resolved]
  - Oropharyngeal blistering [Recovered/Resolved]
  - Throat irritation [Recovered/Resolved]

NARRATIVE: CASE EVENT DATE: 20170715
